FAERS Safety Report 7991295-6 (Version None)
Quarter: 2011Q4

REPORT INFORMATION
  Report Type: 
  Country: None (occurrence: None)
  Receive Date: 20111219
  Receipt Date: 20111212
  Transmission Date: 20120403
  Serious: Yes (Hospitalization, Other)
  Sender: FDA-Public Use
  Company Number: US-ELI_LILLY_AND_COMPANY-US201107006523

PATIENT
  Sex: Female
  Weight: 112.93 kg

DRUGS (11)
  1. ASPIRIN [Concomitant]
  2. PRILOSEC [Concomitant]
  3. BUMEX [Concomitant]
  4. GABAPENTIN [Concomitant]
  5. ZYRTEC [Concomitant]
  6. METFORMIN HCL [Concomitant]
  7. PAXIL [Concomitant]
  8. BYETTA [Suspect]
     Dosage: UNK, UNKNOWN
     Dates: start: 20050101, end: 20080101
  9. LORTAB [Concomitant]
  10. LIPITOR [Concomitant]
  11. LISINOPRIL [Concomitant]

REACTIONS (3)
  - PANCREATITIS [None]
  - RENAL FAILURE ACUTE [None]
  - RENAL FAILURE CHRONIC [None]
